FAERS Safety Report 8209717-4 (Version None)
Quarter: 2012Q1

REPORT INFORMATION
  Report Type: 
  Country: None (occurrence: None)
  Receive Date: 20120314
  Receipt Date: 20120305
  Transmission Date: 20120608
  Serious: Yes (Other)
  Sender: FDA-Public Use
  Company Number: FR-ASTRAZENECA-2012SE16298

PATIENT
  Age: 3713 Day
  Sex: Male

DRUGS (1)
  1. SYMBICORT [Suspect]
     Indication: TONSILLITIS
     Dosage: 160/4.5 UG PER DOSE ONCE/SINGLE ADMINISTRATION
     Route: 055
     Dates: start: 20120126, end: 20120126

REACTIONS (1)
  - DYSPNOEA [None]
